FAERS Safety Report 12374966 (Version 1)
Quarter: 2016Q2

REPORT INFORMATION
  Report Type: Spontaneous
  Country: US (occurrence: None)
  Receive Date: 20160516
  Receipt Date: 20160516
  Transmission Date: 20160815
  Serious: Yes (Other)
  Sender: FDA-Public Use
  Company Number: None

PATIENT
  Age: 59 Year
  Sex: Male
  Weight: 170 kg

DRUGS (1)
  1. FLUOROURACIL CREAM 5%, 5 G [Suspect]
     Active Substance: FLUOROURACIL
     Indication: PRECANCEROUS SKIN LESION
     Dosage: 40 CREAM TWICE A DAY APPLIED TO A SURFACE, USUALLY THE SKIN
     Route: 061
     Dates: start: 20160419, end: 20160504

REACTIONS (6)
  - Drug hypersensitivity [None]
  - Skin haemorrhage [None]
  - Pain [None]
  - Skin fissures [None]
  - Thermal burn [None]
  - Rash pustular [None]

NARRATIVE: CASE EVENT DATE: 20160504
